FAERS Safety Report 18994953 (Version 1)
Quarter: 2021Q1

REPORT INFORMATION
  Report Type: Spontaneous
  Country: US (occurrence: US)
  Receive Date: 20210310
  Receipt Date: 20210310
  Transmission Date: 20210420
  Serious: No
  Sender: FDA-Public Use
  Company Number: US-EYEVANCE PHARMACEUTICALS-2020EYE00058

PATIENT
  Sex: Female

DRUGS (3)
  1. AZELASTINE OPHTHALMIC [Suspect]
     Active Substance: AZELASTINE
  2. KETOTIFEN OPHTHALMIC [Suspect]
     Active Substance: KETOTIFEN
  3. FLUOROMETHOLONE. [Suspect]
     Active Substance: FLUOROMETHOLONE

REACTIONS (1)
  - Treatment failure [Unknown]
